FAERS Safety Report 5650462-7 (Version None)
Quarter: 2008Q1

REPORT INFORMATION
  Report Type: 
  Country: None (occurrence: None)
  Receive Date: 20080304
  Receipt Date: 20080304
  Transmission Date: 20080703
  Serious: Yes (Hospitalization)
  Sender: FDA-Public Use
  Company Number: None

PATIENT
  Age: 86 Year
  Sex: Male

DRUGS (13)
  1. LEVOFLOXACIN [Suspect]
     Indication: URINARY TRACT INFECTION
     Dosage: 250 MG EVERY OTHER DAY PO
     Route: 048
     Dates: start: 20071007, end: 20071015
  2. WARFARIN SODIUM [Suspect]
     Indication: ATRIAL FIBRILLATION
     Dosage: 7.5 MG DAILY PO
     Route: 048
     Dates: start: 20070915, end: 20071015
  3. LASIX [Concomitant]
  4. LANOXIN [Concomitant]
  5. COUMADIN [Concomitant]
  6. FLUOXETINE [Concomitant]
  7. GEMFIBROZIL [Concomitant]
  8. ARICEPT [Concomitant]
  9. LISINOPRIL [Concomitant]
  10. TERAZOSIN HCL [Concomitant]
  11. MULTIPLE VITAMIN [Concomitant]
  12. TYLENOL (CAPLET) [Concomitant]
  13. ZOMETA [Concomitant]

REACTIONS (12)
  - ASTHENIA [None]
  - BACTERIA BLOOD IDENTIFIED [None]
  - BLOOD CREATININE INCREASED [None]
  - CATHETER RELATED INFECTION [None]
  - DIARRHOEA HAEMORRHAGIC [None]
  - FAECES DISCOLOURED [None]
  - HEART RATE IRREGULAR [None]
  - INTERNATIONAL NORMALISED RATIO INCREASED [None]
  - MALAISE [None]
  - PYREXIA [None]
  - PYURIA [None]
  - RESPIRATORY RATE INCREASED [None]
